FAERS Safety Report 9104439 (Version 3)
Quarter: 2013Q1

REPORT INFORMATION
  Report Type: Spontaneous
  Country: US (occurrence: US)
  Receive Date: 20130219
  Receipt Date: 20130226
  Transmission Date: 20140127
  Serious: Yes (Death, Hospitalization)
  Sender: FDA-Public Use
  Company Number: US-BIOGENIDEC-2013BI014246

PATIENT
  Sex: Male

DRUGS (1)
  1. TYSABRI [Suspect]
     Indication: MULTIPLE SCLEROSIS
     Route: 042
     Dates: start: 20070321, end: 20130105

REACTIONS (6)
  - Pneumonia [Fatal]
  - Local swelling [Unknown]
  - Oedema [Unknown]
  - Mental status changes [Unknown]
  - Dysarthria [Unknown]
  - Aspiration [Unknown]
